FAERS Safety Report 9607595 (Version 1)
Quarter: 2013Q4

REPORT INFORMATION
  Report Type: Spontaneous
  Country: FR (occurrence: FR)
  Receive Date: 20131009
  Receipt Date: 20131009
  Transmission Date: 20140711
  Serious: Yes (Other)
  Sender: FDA-Public Use
  Company Number: PHHY2013FR111654

PATIENT
  Age: 60 Year
  Sex: 0

DRUGS (3)
  1. TASIGNA [Suspect]
     Route: 048
     Dates: start: 2009
  2. CRESTOR [Concomitant]
     Indication: BLOOD CHOLESTEROL INCREASED
     Dosage: UNK
  3. ANTIHYPERTENSIVES [Concomitant]

REACTIONS (1)
  - Renal artery stenosis [Unknown]
